FAERS Safety Report 16756536 (Version 1)
Quarter: 2019Q3

REPORT INFORMATION
  Report Type: Spontaneous
  Country: FR (occurrence: FR)
  Receive Date: 20190829
  Receipt Date: 20190829
  Transmission Date: 20191005
  Serious: Yes (Death)
  Sender: FDA-Public Use
  Company Number: FR-MYLANLABS-2019M1081307

PATIENT
  Sex: Female

DRUGS (7)
  1. LEFLUNOMIDE. [Suspect]
     Active Substance: LEFLUNOMIDE
     Indication: CARTILAGE-HAIR HYPOPLASIA
  2. MIRTAZAPINE. [Suspect]
     Active Substance: MIRTAZAPINE
     Indication: PROGRESSIVE MULTIFOCAL LEUKOENCEPHALOPATHY
  3. LEFLUNOMIDE. [Suspect]
     Active Substance: LEFLUNOMIDE
     Indication: PROGRESSIVE MULTIFOCAL LEUKOENCEPHALOPATHY
     Dosage: UNK
     Route: 048
  4. HUMAN IMMUNOGLOBULIN [Suspect]
     Active Substance: HUMAN IMMUNOGLOBULIN G
     Indication: CARTILAGE-HAIR HYPOPLASIA
     Dosage: HIGH-DOSE THERAPY FOR PML
  5. HUMAN IMMUNOGLOBULIN [Suspect]
     Active Substance: HUMAN IMMUNOGLOBULIN G
     Indication: PROGRESSIVE MULTIFOCAL LEUKOENCEPHALOPATHY
     Dosage: REPLACEMENT THERAPY
     Route: 042
  6. CIDOFOVIR. [Concomitant]
     Active Substance: CIDOFOVIR
     Route: 065
  7. MIRTAZAPINE. [Suspect]
     Active Substance: MIRTAZAPINE
     Indication: CARTILAGE-HAIR HYPOPLASIA

REACTIONS (1)
  - Drug ineffective for unapproved indication [Fatal]
